FAERS Safety Report 6759681-X (Version None)
Quarter: 2010Q2

REPORT INFORMATION
  Report Type: 
  Country: None (occurrence: None)
  Receive Date: 20100608
  Receipt Date: 20100602
  Transmission Date: 20101027
  Serious: Yes (Hospitalization, Other)
  Sender: FDA-Public Use
  Company Number: US-ASTRAZENECA-2006UW04831

PATIENT
  Age: 679 Month
  Sex: Female
  Weight: 83 kg

DRUGS (9)
  1. SEROQUEL [Suspect]
     Indication: BIPOLAR DISORDER
     Dosage: 200-300MG
     Route: 048
     Dates: start: 20030101, end: 20040101
  2. SEROQUEL [Suspect]
     Route: 048
     Dates: start: 20040517
  3. RISPERDAL [Concomitant]
     Dates: start: 20031201
  4. PROZAC [Concomitant]
     Dates: start: 20031219
  5. VALPROIC ACID [Concomitant]
     Dates: start: 20031201
  6. HYDROCHLOROTHIAZIDE [Concomitant]
     Dates: start: 20030912
  7. METOPROLOL TARTRATE [Concomitant]
     Dates: start: 20031010
  8. INSULIN HUMAN R [Concomitant]
     Dosage: 100 UNITS/ML
     Dates: start: 20031219
  9. LISINOPRIL [Concomitant]
     Dates: start: 20040503

REACTIONS (12)
  - BLINDNESS [None]
  - BLOOD CHOLESTEROL INCREASED [None]
  - DIABETES MELLITUS [None]
  - DIABETES MELLITUS INADEQUATE CONTROL [None]
  - DIABETIC COMA [None]
  - DIABETIC HYPERGLYCAEMIC COMA [None]
  - DIABETIC KETOACIDOSIS [None]
  - HYPERGLYCAEMIA [None]
  - HYPERLIPIDAEMIA [None]
  - HYPERTENSION [None]
  - OBESITY [None]
  - TYPE 2 DIABETES MELLITUS [None]
